FAERS Safety Report 8548581-0 (Version None)
Quarter: 2012Q3

REPORT INFORMATION
  Report Type: 
  Country: None (occurrence: None)
  Receive Date: 20120720
  Receipt Date: 20120720
  Transmission Date: 20120928
  Serious: Yes (Other)
  Sender: FDA-Public Use
  Company Number: None

PATIENT
  Sex: Female

DRUGS (1)
  1. ATACAND [Suspect]
     Indication: HYPERTENSION
     Dosage: 60 MG ONCE A DAY PO
     Route: 048

REACTIONS (3)
  - WEIGHT DECREASED [None]
  - FATIGUE [None]
  - SYNCOPE [None]
